FAERS Safety Report 10315003 (Version 1)
Quarter: 2014Q3

REPORT INFORMATION
  Report Type: Spontaneous
  Country: FR (occurrence: FR)
  Receive Date: 20140718
  Receipt Date: 20140718
  Transmission Date: 20150326
  Serious: Yes (Life-Threatening, Hospitalization)
  Sender: FDA-Public Use
  Company Number: FR-ASTRAZENECA-2014SE52397

PATIENT
  Age: 18019 Day
  Sex: Female

DRUGS (3)
  1. XEROQUEL [Suspect]
     Active Substance: QUETIAPINE FUMARATE
     Route: 048
     Dates: start: 20131029
  2. TERCIAN [Suspect]
     Active Substance: CYAMEMAZINE
     Dosage: FOR YEARS
     Route: 048
  3. CLOPIXOL [Suspect]
     Active Substance: ZUCLOPENTHIXOL ACETATE
     Dosage: FOR MORE THAN TEN YEARS
     Route: 048

REACTIONS (3)
  - Coma [Unknown]
  - Intestinal obstruction [Recovered/Resolved with Sequelae]
  - Sepsis [Unknown]

NARRATIVE: CASE EVENT DATE: 20140630
